FAERS Safety Report 18525896 (Version 2)
Quarter: 2020Q4

REPORT INFORMATION
  Report Type: Spontaneous
  Country: JP (occurrence: JP)
  Receive Date: 20201120
  Receipt Date: 20201218
  Transmission Date: 20210114
  Serious: Yes (Death, Other)
  Sender: FDA-Public Use
  Company Number: JP-GLAXOSMITHKLINE-JP2020JPN227571

PATIENT
  Age: 6 Decade
  Sex: Female

DRUGS (1)
  1. BENLYSTA [Suspect]
     Active Substance: BELIMUMAB
     Dosage: UNK
     Route: 058
     Dates: start: 20181219

REACTIONS (4)
  - Rheumatoid arthritis [Fatal]
  - Cardiac failure chronic [Fatal]
  - Systemic lupus erythematosus [Fatal]
  - Arthralgia [Fatal]
